FAERS Safety Report 8189539-3 (Version None)
Quarter: 2012Q1

REPORT INFORMATION
  Report Type: 
  Country: None (occurrence: None)
  Receive Date: 20120307
  Receipt Date: 20120301
  Transmission Date: 20120608
  Serious: Yes (Life-Threatening, Hospitalization)
  Sender: FDA-Public Use
  Company Number: US-CELGENEUS-163-21880-12012638

PATIENT
  Sex: Female
  Weight: 66.4 kg

DRUGS (40)
  1. REVLIMID [Suspect]
     Indication: MULTIPLE MYELOMA
     Dosage: 15 MILLIGRAM
     Route: 048
     Dates: start: 20111108
  2. FENTANYL [Concomitant]
     Dosage: 50 MICROGRAM
     Route: 061
  3. DULCOLAX [Concomitant]
     Route: 065
  4. REVLIMID [Suspect]
     Dosage: 15 MILLIGRAM
     Route: 048
     Dates: start: 20120105
  5. LANTUS [Concomitant]
     Dosage: 10 UNITS
     Route: 058
  6. MORPHINE [Concomitant]
     Indication: PAIN
     Dosage: 2 MILLIGRAM
     Route: 041
  7. PROTONIX [Concomitant]
     Dosage: 40 MILLIGRAM
     Route: 048
  8. CALCIUM CARBONATE [Concomitant]
     Route: 065
  9. SENOKOT [Concomitant]
     Route: 065
  10. LISINOPRIL [Concomitant]
     Indication: HYPERTENSION
     Dosage: 10 MILLIGRAM
     Route: 048
  11. POLYETHYLENE GLYCOL [Concomitant]
     Indication: CONSTIPATION
     Dosage: 17 GRAM
     Route: 048
  12. LEVOFLOXACIN [Concomitant]
     Dosage: 500 MILLIGRAM
     Route: 041
  13. ASPIRIN [Concomitant]
     Dosage: 325 MILLIGRAM
     Route: 048
  14. MAGNESIUM HYDROXIDE TAB [Concomitant]
     Route: 065
  15. LASIX [Concomitant]
     Route: 065
     Dates: start: 20110101
  16. SODIUM CHLORIDE [Concomitant]
     Dosage: 150ML/HR
     Route: 041
  17. VANCOMYCIN [Concomitant]
     Dosage: 1000 MILLIGRAM
     Route: 041
  18. MUCOMYST [Concomitant]
     Route: 065
  19. SUPPOSITORY [Concomitant]
     Route: 065
  20. INSULIN LISPRO [Concomitant]
     Route: 065
  21. OXYCODONE HCL [Concomitant]
     Indication: PAIN
     Dosage: 2 TABLET
     Route: 048
  22. SIMVASTATIN [Concomitant]
     Dosage: 20 MILLIGRAM
     Route: 048
  23. CEPHALEXIN [Concomitant]
     Indication: CELLULITIS
     Dosage: 1 TABLET
     Route: 048
  24. VITAMIIN K [Concomitant]
     Route: 065
  25. LEVOFLOXACIN [Concomitant]
     Dosage: 750 MILLIGRAM
     Route: 041
  26. PERCOCET [Concomitant]
     Indication: PAIN
     Dosage: 5/325 MG
     Route: 048
  27. MIRALAX [Concomitant]
     Route: 065
  28. DEXAMETHASONE [Suspect]
     Indication: MULTIPLE MYELOMA
     Dosage: 40 MILLIGRAM
     Route: 065
     Dates: start: 20111110
  29. BENAZEPRIL HYDROCHLORIDE [Concomitant]
     Route: 065
  30. DOXYCYCLINE [Concomitant]
     Dosage: 100 MILLIGRAM
     Route: 065
  31. DEXTROSE [Concomitant]
     Route: 065
  32. ZOLPIDEM [Concomitant]
     Indication: SLEEP DISORDER
     Dosage: 5 MILLIGRAM
     Route: 048
  33. LANTUS [Concomitant]
     Dosage: 15 UNITS
     Route: 058
  34. NOREPINEPHRINE BITARTRATE [Concomitant]
     Dosage: 8 MILLIGRAM
     Route: 041
  35. GLUCAGON [Concomitant]
     Route: 065
  36. PLAVIX [Concomitant]
     Dosage: 75 MILLIGRAM
     Route: 048
  37. SODIUM BICARBONATE [Concomitant]
     Indication: METABOLIC ACIDOSIS
     Dosage: 650 MILLIGRAM
     Route: 048
  38. COUMADIN [Concomitant]
     Indication: ARTERIAL THROMBOSIS
     Dosage: 4 MILLIGRAM
     Route: 048
  39. VORICONAZOLE [Concomitant]
     Route: 065
  40. COLACE [Concomitant]
     Route: 065

REACTIONS (5)
  - SEPTIC SHOCK [None]
  - PERIPHERAL ARTERIAL OCCLUSIVE DISEASE [None]
  - PANCYTOPENIA [None]
  - RENAL FAILURE ACUTE [None]
  - PNEUMONIA [None]
